FAERS Safety Report 17347719 (Version 1)
Quarter: 2020Q1

REPORT INFORMATION
  Report Type: Spontaneous
  Country: US (occurrence: US)
  Receive Date: 20200130
  Receipt Date: 20200130
  Transmission Date: 20200409
  Serious: No
  Sender: FDA-Public Use
  Company Number: US-BIOGEN-2019BI00815999

PATIENT
  Sex: Male
  Weight: 113.5 kg

DRUGS (11)
  1. TECFIDERA [Suspect]
     Active Substance: DIMETHYL FUMARATE
     Dosage: STARTING DOSE
     Route: 048
  2. TIZANDINE [Concomitant]
     Active Substance: TIZANIDINE
     Route: 048
  3. FENOFIBRATE MICRONIZED [Concomitant]
     Active Substance: FENOFIBRATE
     Dosage: TAKING FENOFIBRATE MICRONIZED 134 MG CAPSULE 1 CAPSULE WITH A MEAL ORALLY ONCE A DAY
     Route: 048
  4. NORCO [Concomitant]
     Active Substance: ACETAMINOPHEN\HYDROCODONE BITARTRATE
     Dosage: TAKING NORCO  10-325 MG TABLET 1 TABLET AS NEEDED ORALLY EVERY 6 HOURS.
     Route: 048
  5. ASPIRINE [Concomitant]
     Active Substance: ASPIRIN
     Route: 048
  6. TECFIDERA [Suspect]
     Active Substance: DIMETHYL FUMARATE
     Indication: MULTIPLE SCLEROSIS
     Dosage: MAINTENANCE DOSE
     Route: 048
  7. POTASSIUM CHLORIDE. [Concomitant]
     Active Substance: POTASSIUM CHLORIDE
     Route: 048
  8. LASIX [Concomitant]
     Active Substance: FUROSEMIDE
     Route: 048
  9. TECFIDERA [Suspect]
     Active Substance: DIMETHYL FUMARATE
     Dosage: MAINTENANCE DOSE
     Route: 048
  10. GABAPENTIN. [Concomitant]
     Active Substance: GABAPENTIN
     Dosage: TAKING GABAPENTIN 300 MG CAPSULE 1-2 CAPS ORALLY QD
     Route: 048
  11. ISOSORBIDE MONONITRATE. [Concomitant]
     Active Substance: ISOSORBIDE MONONITRATE
     Route: 048

REACTIONS (3)
  - Chest pain [Unknown]
  - Cardiac disorder [Unknown]
  - Underdose [Unknown]
